FAERS Safety Report 8622496-1 (Version None)
Quarter: 2012Q3

REPORT INFORMATION
  Report Type: 
  Country: None (occurrence: None)
  Receive Date: 20120827
  Receipt Date: 20120821
  Transmission Date: 20120928
  Serious: Yes (Other)
  Sender: FDA-Public Use
  Company Number: US-PFIZER INC-2012205185

PATIENT
  Age: 65 Year
  Sex: Female
  Weight: 61.2 kg

DRUGS (8)
  1. ASPIRIN [Concomitant]
     Dosage: UNK
  2. LIPITOR [Concomitant]
     Indication: BLOOD CHOLESTEROL INCREASED
     Dosage: UNK
  3. NIASPAN [Concomitant]
     Dosage: UNK
  4. LANSOPRAZOLE [Concomitant]
     Dosage: UNK
  5. PREMARIN [Concomitant]
     Dosage: UNK
  6. IBUPROFEN [Concomitant]
     Dosage: UNK
  7. FLUTICASONE [Concomitant]
     Dosage: UNK
     Route: 045
  8. PREMPRO [Suspect]
     Indication: ROUTINE HEALTH MAINTENANCE
     Dosage: 0.625/2.5 MG, 1X/DAY
     Route: 048
     Dates: start: 19920101

REACTIONS (2)
  - METRORRHAGIA [None]
  - PRODUCT QUALITY ISSUE [None]
